FAERS Safety Report 6533985-8 (Version None)
Quarter: 2010Q1

REPORT INFORMATION
  Report Type: 
  Country: None (occurrence: None)
  Receive Date: 20100112
  Receipt Date: 20100105
  Transmission Date: 20100710
  Serious: Yes (Other)
  Sender: FDA-Public Use
  Company Number: US-ROCHE-672958

PATIENT
  Sex: Female
  Weight: 68 kg

DRUGS (1)
  1. CAPECITABINE [Suspect]
     Indication: BREAST CANCER
     Dosage: STRENGTH: 500MG/ 150MG; FREQUENCY: 3DAILY/ 2DAILY
     Route: 048
     Dates: start: 20090629, end: 20091002

REACTIONS (1)
  - MALIGNANT NEOPLASM PROGRESSION [None]
